FAERS Safety Report 10523537 (Version 1)
Quarter: 2014Q4

REPORT INFORMATION
  Report Type: Spontaneous
  Country: US (occurrence: US)
  Receive Date: 20141017
  Receipt Date: 20141017
  Transmission Date: 20150528
  Serious: Yes (Hospitalization)
  Sender: FDA-Public Use
  Company Number: US-BEH-2014045586

PATIENT
  Sex: Female
  Weight: 43 kg

DRUGS (20)
  1. NORMAL SALINE [Concomitant]
     Active Substance: SODIUM CHLORIDE
  2. PRIVIGEN [Suspect]
     Active Substance: HUMAN IMMUNOGLOBULIN G
     Indication: DERMATOMYOSITIS
     Route: 042
  3. METHOTREXATE [Concomitant]
     Active Substance: METHOTREXATE
  4. EPIPEN [Concomitant]
     Active Substance: EPINEPHRINE
  5. REMICADE [Concomitant]
     Active Substance: INFLIXIMAB
  6. PLAQUENIL [Concomitant]
     Active Substance: HYDROXYCHLOROQUINE SULFATE
  7. FOLIC ACID. [Concomitant]
     Active Substance: FOLIC ACID
  8. PRIVIGEN [Suspect]
     Active Substance: HUMAN IMMUNOGLOBULIN G
     Indication: DERMATOMYOSITIS
     Route: 042
  9. ACETAMINOPHEN. [Concomitant]
     Active Substance: ACETAMINOPHEN
  10. PREDNISONE. [Concomitant]
     Active Substance: PREDNISONE
  11. PREVACID [Concomitant]
     Active Substance: LANSOPRAZOLE
  12. DIPHENHYDRAMINE [Concomitant]
     Active Substance: DIPHENHYDRAMINE
  13. SODIUM CHLORIDE. [Concomitant]
     Active Substance: SODIUM CHLORIDE
  14. VALIUM [Concomitant]
     Active Substance: DIAZEPAM
  15. DEXTROSE. [Concomitant]
     Active Substance: DEXTROSE
  16. HEPARIN [Concomitant]
     Active Substance: HEPARIN SODIUM
  17. LMX [Concomitant]
     Active Substance: LIDOCAINE
  18. SOLU-MEDROL [Concomitant]
     Active Substance: METHYLPREDNISOLONE SODIUM SUCCINATE
  19. PROTOPIC [Concomitant]
     Active Substance: TACROLIMUS
  20. TAMIFLU [Concomitant]
     Active Substance: OSELTAMIVIR PHOSPHATE

REACTIONS (1)
  - Condition aggravated [Unknown]
